FAERS Safety Report 17368983 (Version 1)
Quarter: 2020Q1

REPORT INFORMATION
  Report Type: Spontaneous
  Country: AU (occurrence: AU)
  Receive Date: 20200204
  Receipt Date: 20200204
  Transmission Date: 20200409
  Serious: No
  Sender: FDA-Public Use
  Company Number: AU-MARKSANS PHARMA LIMITED-2079819

PATIENT
  Sex: Female

DRUGS (1)
  1. IBUPROFEN MOLECULE FROM AUSTRALIAN MARKET [Suspect]
     Active Substance: IBUPROFEN
     Route: 048

REACTIONS (1)
  - Hypersensitivity [None]
